FAERS Safety Report 11115107 (Version 1)
Quarter: 2015Q2

REPORT INFORMATION
  Report Type: Spontaneous
  Country: US (occurrence: None)
  Receive Date: 20150513
  Receipt Date: 20150513
  Transmission Date: 20150821
  Serious: Yes (Other)
  Sender: FDA-Public Use
  Company Number: 2015SA061221

PATIENT
  Age: 59 Year
  Sex: Female

DRUGS (1)
  1. ICY HOT MEDICATED, BACK [Suspect]
     Active Substance: MENTHOL
     Dosage: ;ONCE;TOPICAL
     Route: 061
     Dates: start: 20150503, end: 20150504

REACTIONS (4)
  - Application site burn [None]
  - Impaired driving ability [None]
  - Application site pain [None]
  - Application site exfoliation [None]

NARRATIVE: CASE EVENT DATE: 20150504
